FAERS Safety Report 18591877 (Version 3)
Quarter: 2021Q1

REPORT INFORMATION
  Report Type: Spontaneous
  Country: DE (occurrence: DE)
  Receive Date: 20201208
  Receipt Date: 20210115
  Transmission Date: 20210419
  Serious: Yes (Hospitalization)
  Sender: FDA-Public Use
  Company Number: DE-CELGENEUS-DEU-20201104658

PATIENT
  Age: 77 Year
  Sex: Male
  Weight: 55 kg

DRUGS (4)
  1. NO?SPAS [Concomitant]
     Indication: PRODUCT USED FOR UNKNOWN INDICATION
     Route: 065
     Dates: start: 202010
  2. REBLOZYL [Suspect]
     Active Substance: LUSPATERCEPT-AAMT
     Indication: MYELODYSPLASTIC SYNDROME
     Route: 058
     Dates: start: 20200820, end: 20200910
  3. REBLOZYL [Suspect]
     Active Substance: LUSPATERCEPT-AAMT
     Route: 058
     Dates: start: 20201001, end: 20201023
  4. TAMSULOSIN [Concomitant]
     Active Substance: TAMSULOSIN
     Indication: PRODUCT USED FOR UNKNOWN INDICATION
     Route: 065

REACTIONS (2)
  - Ascites [Not Recovered/Not Resolved]
  - Pleural effusion [Not Recovered/Not Resolved]

NARRATIVE: CASE EVENT DATE: 20201112
